FAERS Safety Report 6367728-8 (Version None)
Quarter: 2009Q3

REPORT INFORMATION
  Report Type: 
  Country: None (occurrence: None)
  Receive Date: 20090921
  Receipt Date: 20090914
  Transmission Date: 20100115
  Serious: Yes (Death, Hospitalization)
  Sender: FDA-Public Use
  Company Number: PHHY2009DE39740

PATIENT
  Age: 27 Year
  Sex: Male

DRUGS (3)
  1. DICLOFENAC [Suspect]
     Dosage: 75 MG, BID
  2. PIROXICAM [Suspect]
     Dosage: 20 MG, UNK
     Route: 030
  3. DEXAMETHASONE [Suspect]

REACTIONS (16)
  - ASCITES [None]
  - BLOOD CREATININE INCREASED [None]
  - C-REACTIVE PROTEIN INCREASED [None]
  - CONTUSION [None]
  - HAEMOGLOBIN DECREASED [None]
  - HEPATOMEGALY [None]
  - LEUKOCYTOSIS [None]
  - MULTI-ORGAN FAILURE [None]
  - MUSCLE SPASMS [None]
  - MYOGLOBIN BLOOD INCREASED [None]
  - PERICARDIAL EFFUSION [None]
  - PLEURAL EFFUSION [None]
  - SERUM FERRITIN INCREASED [None]
  - SHOCK [None]
  - SOMNOLENCE [None]
  - THROMBOCYTOPENIA [None]
